FAERS Safety Report 8506758-4 (Version None)
Quarter: 2012Q3

REPORT INFORMATION
  Report Type: 
  Country: None (occurrence: None)
  Receive Date: 20120712
  Receipt Date: 20120703
  Transmission Date: 20120928
  Serious: Yes (Hospitalization)
  Sender: FDA-Public Use
  Company Number: US-PFIZER INC-2012158491

PATIENT
  Sex: Female
  Weight: 90.7 kg

DRUGS (17)
  1. IBUPROFEN [Suspect]
     Indication: RHEUMATOID ARTHRITIS
  2. FUROSEMIDE [Concomitant]
     Indication: OEDEMA
     Dosage: 20 MG, 2 TABS Q AM (MORNING)
     Route: 048
     Dates: start: 20111129
  3. ROSUVASTATIN [Concomitant]
     Indication: HYPERCHOLESTEROLAEMIA
     Dosage: 20 MG, 1X/DAY
     Route: 048
     Dates: start: 20100810
  4. NEXIUM [Concomitant]
     Indication: PROPHYLAXIS
     Dosage: 40 MG, 1X/DAY
     Route: 048
     Dates: end: 20120627
  5. NITRO-DUR [Concomitant]
     Indication: CHEST PAIN
     Dosage: 0.4 MG, AS NEEDED
     Route: 060
     Dates: start: 20110318
  6. MIRAPEX [Concomitant]
     Indication: RESTLESS LEGS SYNDROME
     Dosage: 0.25 MG, TID
     Route: 048
     Dates: start: 20110912
  7. RANOLAZINE [Concomitant]
     Indication: CHEST DISCOMFORT
     Dosage: 500 MG XR, BID
     Route: 048
     Dates: start: 20110408
  8. IBUPROFEN [Suspect]
     Indication: OSTEOARTHRITIS
     Dosage: 800 MG, 3X/DAY
     Route: 048
     Dates: end: 20120627
  9. ACETYLSALICYLIC ACID [Concomitant]
     Indication: PROPHYLAXIS
     Dosage: 81 MG, 1X/DAY
     Route: 048
     Dates: start: 20120109
  10. LEVOCETIRIZINE DIHYDROCHLORIDE [Concomitant]
     Indication: SEASONAL ALLERGY
     Dosage: 5 MG, 1X/DAY
     Route: 048
     Dates: start: 20110323
  11. METOPROLOL SUCCINATE [Concomitant]
     Indication: HYPERTENSION
     Dosage: 25 MG, 1X/DAY
     Route: 048
     Dates: start: 20100820
  12. CLOPIDOGREL [Concomitant]
     Indication: CORONARY ARTERY DISEASE
     Dosage: 75 MG, 1X/DAY
     Route: 048
     Dates: start: 20101012
  13. BUSPIRONE HYDROCHLORIDE [Concomitant]
     Indication: STRESS
     Dosage: 5 MG, 1X/DAY
     Route: 048
     Dates: start: 20111129
  14. KLOR-CON [Concomitant]
     Indication: SUPPLEMENTATION THERAPY
     Dosage: 20 MEQ, 1 TAB Q DAY
     Route: 048
     Dates: start: 20111130
  15. CITALOPRAM [Concomitant]
     Indication: ANXIETY
     Dosage: 20 MG, 1X/DAY
     Route: 048
     Dates: start: 20100525
  16. PHENTERMINE HYDROCHLORIDE [Concomitant]
     Indication: WEIGHT DECREASED
     Dosage: 30 MG, 1X/DAY
     Route: 048
     Dates: start: 20110811
  17. FENOFIBRATE [Concomitant]
     Indication: HYPERCHOLESTEROLAEMIA
     Dosage: 145 MG, 1X/DAY
     Route: 048
     Dates: start: 20111216

REACTIONS (1)
  - SYNCOPE [None]
